FAERS Safety Report 24581068 (Version 2)
Quarter: 2024Q4

REPORT INFORMATION
  Report Type: Report from Study
  Country: JP (occurrence: JP)
  Receive Date: 20241105
  Receipt Date: 20241108
  Transmission Date: 20250114
  Serious: Yes (Hospitalization)
  Sender: JOHNSON AND JOHNSON
  Company Number: JP-JNJFOC-20241108242

PATIENT

DRUGS (2)
  1. RISPERDAL [Suspect]
     Active Substance: RISPERIDONE
     Indication: Product used for unknown indication
     Dosage: DOSE UNKNOWN
     Route: 064
  2. RISPERDAL [Suspect]
     Active Substance: RISPERIDONE
     Indication: Product used for unknown indication
     Dosage: DOSE UNKNOWN
     Route: 064

REACTIONS (4)
  - Dyspnoea [Unknown]
  - Jaundice [Unknown]
  - Hypoglycaemia [Unknown]
  - Foetal exposure during pregnancy [Unknown]
